FAERS Safety Report 25590749 (Version 1)
Quarter: 2025Q3

REPORT INFORMATION
  Report Type: Report from Study
  Country: US (occurrence: US)
  Receive Date: 20250722
  Receipt Date: 20250722
  Transmission Date: 20251021
  Serious: Yes (Hospitalization, Other)
  Sender: MERCK SHARP & DOHME LLC
  Company Number: US-009507513-2255183

PATIENT
  Sex: Female
  Weight: 89.3 kg

DRUGS (37)
  1. WINREVAIR [Suspect]
     Active Substance: SOTATERCEPT-CSRK
     Indication: Pulmonary arterial hypertension
     Dosage: 1.3ML/ Q3W
     Route: 050
     Dates: start: 20250108
  2. WINREVAIR [Suspect]
     Active Substance: SOTATERCEPT-CSRK
  3. WINREVAIR [Suspect]
     Active Substance: SOTATERCEPT-CSRK
  4. WINREVAIR [Suspect]
     Active Substance: SOTATERCEPT-CSRK
  5. WINREVAIR [Suspect]
     Active Substance: SOTATERCEPT-CSRK
  6. WINREVAIR [Suspect]
     Active Substance: SOTATERCEPT-CSRK
  7. WINREVAIR [Suspect]
     Active Substance: SOTATERCEPT-CSRK
  8. WINREVAIR [Suspect]
     Active Substance: SOTATERCEPT-CSRK
  9. DIGOXIN [Concomitant]
     Active Substance: DIGOXIN
  10. SIMETHICONE (DIMETHICONE) [Concomitant]
     Active Substance: DIMETHICONE
  11. SPIRIVA RESPIMAT [Concomitant]
     Active Substance: TIOTROPIUM BROMIDE
  12. Cymbalta [DULOXETINE HCL] [Concomitant]
  13. AMLODIPINE BESYLATE [Concomitant]
     Active Substance: AMLODIPINE BESYLATE
  14. ALLEGRA ALLERGY [Concomitant]
     Active Substance: FEXOFENADINE HYDROCHLORIDE
  15. BREO ELLIPTA [Concomitant]
     Active Substance: FLUTICASONE FUROATE\VILANTEROL TRIFENATATE
  16. ALBUTEROL SULFATE [Concomitant]
     Active Substance: ALBUTEROL SULFATE
  17. LEVOTHYROXINE SODIUM [Concomitant]
     Active Substance: LEVOTHYROXINE SODIUM
  18. CYMBALTA [Concomitant]
     Active Substance: DULOXETINE HYDROCHLORIDE
  19. ALLOPURINOL [Concomitant]
     Active Substance: ALLOPURINOL
  20. INCRUSE ELLIPTA [Concomitant]
     Active Substance: UMECLIDINIUM BROMIDE
  21. TADALAFIL [Concomitant]
     Active Substance: TADALAFIL
  22. POTASSIUM CHLORIDE [Concomitant]
     Active Substance: POTASSIUM CHLORIDE
  23. ELIQUIS [Concomitant]
     Active Substance: APIXABAN
  24. METOLAZONE [Concomitant]
     Active Substance: METOLAZONE
  25. OPSUMIT [Concomitant]
     Active Substance: MACITENTAN
  26. LISINOPRIL [Concomitant]
     Active Substance: LISINOPRIL
  27. BUPROPION HYDROCHLORIDE [Concomitant]
     Active Substance: BUPROPION HYDROCHLORIDE
  28. SR,ASPIRIN EC [Concomitant]
  29. SIMVASTATIN [Concomitant]
     Active Substance: SIMVASTATIN
  30. SPIRONOLACTONE [Concomitant]
     Active Substance: SPIRONOLACTONE
  31. COLCHICINE [Concomitant]
     Active Substance: COLCHICINE
  32. OXYGEN [Concomitant]
     Active Substance: OXYGEN
  33. ACETAMINOPHEN [Concomitant]
     Active Substance: ACETAMINOPHEN
  34. MAGNESIUM [Concomitant]
     Active Substance: MAGNESIUM
  35. OMEPRAZOLE [Concomitant]
     Active Substance: OMEPRAZOLE
  36. REMODULIN [Suspect]
     Active Substance: TREPROSTINIL
     Indication: Pulmonary arterial hypertension
     Route: 041
     Dates: start: 20081222
  37. TORSEMIDE [Concomitant]
     Active Substance: TORSEMIDE

REACTIONS (7)
  - Anal haemorrhage [Unknown]
  - Injection site pain [Unknown]
  - Epistaxis [Unknown]
  - Malaise [Unknown]
  - Sinus congestion [Unknown]
  - Product dose omission issue [Unknown]
  - Abdominal pain [Recovering/Resolving]

NARRATIVE: CASE EVENT DATE: 20250101
